FAERS Safety Report 14989809 (Version 1)
Quarter: 2018Q2

REPORT INFORMATION
  Report Type: Spontaneous
  Country: US (occurrence: US)
  Receive Date: 20180608
  Receipt Date: 20180608
  Transmission Date: 20180711
  Serious: Yes (Disabling)
  Sender: FDA-Public Use
  Company Number: US-ROCHE-1947777

PATIENT
  Age: 62 Year
  Sex: Female

DRUGS (3)
  1. ACTEMRA [Suspect]
     Active Substance: TOCILIZUMAB
     Dosage: 162 MG/0.9 ML
     Route: 058
     Dates: start: 20170922, end: 20170922
  2. ACTEMRA [Suspect]
     Active Substance: TOCILIZUMAB
     Indication: RHEUMATOID ARTHRITIS
     Route: 058
     Dates: start: 20170307
  3. ACTEMRA [Suspect]
     Active Substance: TOCILIZUMAB
     Dosage: 162 MG/0.9 ML
     Route: 058
     Dates: start: 20170921, end: 20170921

REACTIONS (7)
  - Injection site pruritus [Not Recovered/Not Resolved]
  - Blood pressure increased [Recovered/Resolved]
  - Nasopharyngitis [Recovering/Resolving]
  - Cough [Unknown]
  - Nasopharyngitis [Not Recovered/Not Resolved]
  - Dyspnoea [Recovered/Resolved]
  - Aphonia [Recovering/Resolving]

NARRATIVE: CASE EVENT DATE: 20170307
